FAERS Safety Report 23711423 (Version 1)
Quarter: 2024Q2

REPORT INFORMATION
  Report Type: Report from Study
  Country: US (occurrence: US)
  Receive Date: 20240405
  Receipt Date: 20240405
  Transmission Date: 20240716
  Serious: Yes (Other)
  Sender: FDA-Public Use
  Company Number: US-MYLANLABS-2024M1029767

PATIENT
  Sex: Female
  Weight: 47.63 kg

DRUGS (1)
  1. GLATIRAMER ACETATE [Suspect]
     Active Substance: GLATIRAMER ACETATE
     Indication: Multiple sclerosis
     Dosage: 40 MILLIGRAM, 3XW, (3 X PER WEEK)
     Route: 065

REACTIONS (4)
  - Ophthalmoplegia [Unknown]
  - Multiple sclerosis [Unknown]
  - Memory impairment [Unknown]
  - Diplopia [Unknown]
